FAERS Safety Report 4498953-9 (Version None)
Quarter: 2004Q4

REPORT INFORMATION
  Report Type: 
  Country: None (occurrence: None)
  Receive Date: 20041108
  Receipt Date: 20041025
  Transmission Date: 20050328
  Serious: Yes (Hospitalization)
  Sender: FDA-Public Use
  Company Number: 2002102408GB

PATIENT
  Age: 67 Year
  Sex: Female

DRUGS (3)
  1. FLUOROURACIL [Suspect]
     Indication: COLORECTAL CANCER
     Dosage: SEE IMAGE
     Route: 042
     Dates: start: 20020404, end: 20020404
  2. FLUOROURACIL [Suspect]
     Indication: COLORECTAL CANCER
     Dosage: SEE IMAGE
     Route: 042
     Dates: start: 20020404, end: 20020406
  3. REFOLINON(CALCIUM FOLINATE) SOLUTION, STERILE [Suspect]
     Indication: COLORECTAL CANCER
     Dosage: 688 MG, CYCLIC, IV
     Route: 042
     Dates: start: 20020404, end: 20020406

REACTIONS (4)
  - CARDIAC DISORDER [None]
  - DRUG TOXICITY [None]
  - STAPHYLOCOCCAL SEPSIS [None]
  - VASOSPASM [None]
